FAERS Safety Report 22140948 (Version 1)
Quarter: 2023Q1

REPORT INFORMATION
  Report Type: Spontaneous
  Country: US (occurrence: US)
  Receive Date: 20230327
  Receipt Date: 20230327
  Transmission Date: 20230417
  Serious: Yes (Other)
  Sender: FDA-Public Use
  Company Number: US-drreddys-SPO/USA/23/0162671

PATIENT
  Age: 41 Year
  Sex: Female

DRUGS (1)
  1. DOXORUBICIN HYDROCHLORIDE [Suspect]
     Active Substance: DOXORUBICIN HYDROCHLORIDE
     Indication: Rhabdomyosarcoma

REACTIONS (5)
  - Coronary artery thrombosis [Unknown]
  - Peripartum cardiomyopathy [Unknown]
  - Myocardial infarction [Unknown]
  - Cardiac ventricular thrombosis [Unknown]
  - Product use in unapproved indication [Unknown]
